FAERS Safety Report 12483750 (Version 3)
Quarter: 2016Q4

REPORT INFORMATION
  Report Type: Spontaneous
  Country: US (occurrence: US)
  Receive Date: 20160621
  Receipt Date: 20161028
  Transmission Date: 20170207
  Serious: No
  Sender: FDA-Public Use
  Company Number: US-PFIZER INC-2016286851

PATIENT
  Age: 66 Year
  Sex: Female

DRUGS (4)
  1. FASLODEX [Concomitant]
     Active Substance: FULVESTRANT
     Indication: BREAST CANCER FEMALE
     Dosage: UNK, MONTHLY (1 A MONTH)
     Dates: start: 201410
  2. IBRANCE [Suspect]
     Active Substance: PALBOCICLIB
     Indication: BREAST CANCER FEMALE
     Dosage: 125 MG, CYCLIC (1 CAPSULE BY MOUTH EVERY DAY FOR 21 DAYS THEN TAKE 7 DAYS OFF AS DIRECTED)
     Route: 048
     Dates: start: 20160510
  3. IBRANCE [Suspect]
     Active Substance: PALBOCICLIB
     Indication: TUMOUR MARKER INCREASED
     Dosage: 125 MG, CYCLIC (1 CAPSULE BY MOUTH EVERY DAY FOR 21 DAYS THEN TAKE 7 DAYS OFF)
     Route: 048
     Dates: start: 20160523
  4. IBRANCE [Suspect]
     Active Substance: PALBOCICLIB
     Dosage: 100 MG, ONCE A DAY
     Dates: start: 201605

REACTIONS (3)
  - Oral pain [Recovered/Resolved]
  - Dyspepsia [Recovered/Resolved]
  - Glossodynia [Recovered/Resolved]
